FAERS Safety Report 4300125-5 (Version None)
Quarter: 2004Q1

REPORT INFORMATION
  Report Type: 
  Country: None (occurrence: None)
  Receive Date: 20040218
  Receipt Date: 20040205
  Transmission Date: 20041129
  Serious: Yes (Other)
  Sender: FDA-Public Use
  Company Number: CA-JNJFOC-20040201584

PATIENT
  Age: 35 Year
  Sex: Female

DRUGS (3)
  1. TOPAMAX [Suspect]
     Indication: MIGRAINE
     Dosage: 75 MG,  IN 1 DAY
     Dates: start: 20031201
  2. BIRTH CONTROL PILL (ORAL CONTRACEPTIVE NOS) [Concomitant]
  3. ALESSE (EUGYNON) [Concomitant]

REACTIONS (9)
  - ANISOCYTOSIS [None]
  - BLOOD BICARBONATE DECREASED [None]
  - ELLIPTOCYTOSIS [None]
  - HAEMOGLOBIN INCREASED [None]
  - NEUTROPHIL COUNT DECREASED [None]
  - POIKILOCYTOSIS [None]
  - RED BLOOD CELL MORPHOLOGY ABNORMAL [None]
  - RENAL FAILURE CHRONIC [None]
  - WHITE BLOOD CELL COUNT DECREASED [None]
